FAERS Safety Report 6288494-0 (Version None)
Quarter: 2009Q3

REPORT INFORMATION
  Report Type: 
  Country: None (occurrence: None)
  Receive Date: 20090729
  Receipt Date: 20090720
  Transmission Date: 20100115
  Serious: Yes (Other)
  Sender: FDA-Public Use
  Company Number: US-ASTRAZENECA-2009UW20990

PATIENT
  Age: 75 Year
  Sex: Male

DRUGS (2)
  1. SEROQUEL [Suspect]
     Route: 048
  2. SYNTHROID [Suspect]
     Route: 048

REACTIONS (4)
  - AMNESIA [None]
  - DISORIENTATION [None]
  - DRUG DISPENSING ERROR [None]
  - DYSARTHRIA [None]
